FAERS Safety Report 21975487 (Version 1)
Quarter: 2023Q1

REPORT INFORMATION
  Report Type: Spontaneous
  Country: IN (occurrence: None)
  Receive Date: 20230210
  Receipt Date: 20230210
  Transmission Date: 20230418
  Serious: Yes (Hospitalization, Other)
  Sender: FDA-Public Use
  Company Number: IN-MAIA Pharmaceuticals, Inc.-MAI202302-000009

PATIENT
  Age: 65 Year
  Sex: Female

DRUGS (2)
  1. BACLOFEN [Suspect]
     Active Substance: BACLOFEN
     Indication: Hiccups
     Dosage: 10 MG
     Route: 048
  2. BACLOFEN [Suspect]
     Active Substance: BACLOFEN
     Dosage: 50 MG (TOTAL TAKEN BY DAY 3; FIVE TABLETS)
     Route: 048

REACTIONS (3)
  - Frontotemporal dementia [Recovering/Resolving]
  - Neurotoxicity [Recovering/Resolving]
  - Off label use [Unknown]
